FAERS Safety Report 9483987 (Version 1)
Quarter: 2013Q3

REPORT INFORMATION
  Report Type: Spontaneous
  Country: CA (occurrence: CA)
  Receive Date: 20130828
  Receipt Date: 20130828
  Transmission Date: 20140515
  Serious: Yes (Other)
  Sender: FDA-Public Use
  Company Number: CA-AMGEN-KDL355332

PATIENT
  Age: 50 Year
  Sex: Female
  Weight: 68.1 kg

DRUGS (9)
  1. ENBREL [Suspect]
     Indication: RHEUMATOID ARTHRITIS
     Dosage: 50 MG, QWK
     Route: 058
     Dates: start: 20090707
  2. PREDNISONE [Concomitant]
  3. METHOTREXATE [Concomitant]
     Dosage: UNK UNK, UNK
     Route: 048
  4. IRBESARTAN [Concomitant]
  5. FOLIC ACID [Concomitant]
  6. PANTOPRAZOLE [Concomitant]
  7. PANTOPRAZOLE [Concomitant]
  8. CALCIUM [Concomitant]
  9. MULTIVITAMINS [Concomitant]

REACTIONS (10)
  - Heart rate irregular [Unknown]
  - Heart rate increased [Unknown]
  - Feeling abnormal [Unknown]
  - Malaise [Unknown]
  - Injection site bruising [Unknown]
  - Eructation [Unknown]
  - Cough [Unknown]
  - Rash erythematous [Unknown]
  - Rash pruritic [Unknown]
  - Injection site pain [Unknown]
